FAERS Safety Report 9106625 (Version 2)
Quarter: 2013Q2

REPORT INFORMATION
  Report Type: Spontaneous
  Country: TW (occurrence: TW)
  Receive Date: 20130220
  Receipt Date: 20130620
  Transmission Date: 20140414
  Serious: Yes (Hospitalization)
  Sender: FDA-Public Use
  Company Number: PHHY2013TW014839

PATIENT
  Age: 21 Year
  Sex: Male

DRUGS (8)
  1. VALPROIC ACID [Suspect]
     Indication: SCHIZOPHRENIA
     Dosage: 1000 MG, DAILY
  2. CLONAZEPAM [Suspect]
     Indication: SCHIZOPHRENIA
     Dosage: 2 MG/DAY
  3. OLANZAPINE [Suspect]
     Indication: SCHIZOPHRENIA
  4. ZOTEPINE [Suspect]
     Indication: SCHIZOPHRENIA
     Dosage: 300 MG, DAILY
  5. ZOTEPINE [Suspect]
     Dosage: 200 MG, DAILY
  6. ZOTEPINE [Suspect]
     Dosage: 100 MG DAILY
  7. ZOTEPINE [Suspect]
     Dosage: 250 MG DAILY
  8. ZOTEPINE [Suspect]
     Dosage: 200 MG DAILY

REACTIONS (5)
  - Myopathy [Recovered/Resolved]
  - Pain in extremity [Recovered/Resolved]
  - Muscular weakness [Recovered/Resolved]
  - Myalgia [Recovered/Resolved]
  - Drug ineffective [Unknown]
